FAERS Safety Report 17431972 (Version 2)
Quarter: 2020Q1

REPORT INFORMATION
  Report Type: Report from Study
  Country: US (occurrence: US)
  Receive Date: 20200218
  Receipt Date: 20200221
  Transmission Date: 20200409
  Serious: Yes (Hospitalization)
  Sender: FDA-Public Use
  Company Number: US-EISAI MEDICAL RESEARCH-EC-2019-067110

PATIENT
  Age: 66 Year
  Sex: Female
  Weight: 108.8 kg

DRUGS (20)
  1. LENVIMA [Suspect]
     Active Substance: LENVATINIB
     Route: 048
  2. CHOLECALCIFEROL [Concomitant]
     Active Substance: CHOLECALCIFEROL
  3. CYANOCOBALAMIN. [Concomitant]
     Active Substance: CYANOCOBALAMIN
  4. FUROSEMIDE. [Concomitant]
     Active Substance: FUROSEMIDE
  5. LEVOTHYROXINE SODIUM. [Concomitant]
     Active Substance: LEVOTHYROXINE SODIUM
  6. MAGNESIUM [Concomitant]
     Active Substance: MAGNESIUM
  7. SENOKOT [Concomitant]
     Active Substance: SENNOSIDES
  8. SILVER SULFADIAZINE. [Concomitant]
     Active Substance: SILVER SULFADIAZINE
  9. LENVIMA [Suspect]
     Active Substance: LENVATINIB
     Indication: ENDOMETRIAL CANCER
     Route: 048
     Dates: start: 20191127
  10. DELTASONE [Concomitant]
     Active Substance: PREDNISONE
  11. POTASSIUM CHLORIDE. [Concomitant]
     Active Substance: POTASSIUM CHLORIDE
  12. METOPROLOL TARTRATE. [Concomitant]
     Active Substance: METOPROLOL TARTRATE
  13. MIRALAX [Concomitant]
     Active Substance: POLYETHYLENE GLYCOL 3350
  14. PEMBROLIZUMAB. [Concomitant]
     Active Substance: PEMBROLIZUMAB
     Indication: ENDOMETRIAL CANCER
  15. ACETAMINOPHEN. [Concomitant]
     Active Substance: ACETAMINOPHEN
  16. GABAPENTIN. [Concomitant]
     Active Substance: GABAPENTIN
  17. ONDANSETRON [Concomitant]
     Active Substance: ONDANSETRON
  18. ALLOPURINOL. [Concomitant]
     Active Substance: ALLOPURINOL
  19. AMLODIPINE BESYLATE. [Concomitant]
     Active Substance: AMLODIPINE BESYLATE
  20. PERCOCET [Concomitant]
     Active Substance: ACETAMINOPHEN\OXYCODONE HYDROCHLORIDE

REACTIONS (6)
  - Spinal stenosis [Not Recovered/Not Resolved]
  - Tremor [Unknown]
  - Asthenia [Unknown]
  - Acute kidney injury [Recovered/Resolved]
  - Hepatic enzyme increased [Recovered/Resolved]
  - Hyperkalaemia [Recovered/Resolved]

NARRATIVE: CASE EVENT DATE: 2019
